FAERS Safety Report 20227526 (Version 8)
Quarter: 2024Q3

REPORT INFORMATION
  Report Type: Report from Study
  Country: JP (occurrence: JP)
  Receive Date: 20211224
  Receipt Date: 20240801
  Transmission Date: 20241017
  Serious: Yes (Death, Life-Threatening, Hospitalization, Other)
  Sender: ASTELLAS
  Company Number: JP-ASTELLAS-2021JP024424

PATIENT
  Age: 7 Decade
  Sex: Male
  Weight: 63.4 kg

DRUGS (2)
  1. ENFORTUMAB VEDOTIN-EJFV [Suspect]
     Active Substance: ENFORTUMAB VEDOTIN-EJFV
     Indication: Transitional cell carcinoma
     Route: 041
     Dates: start: 20211201, end: 20211201
  2. PEMBROLIZUMAB [Concomitant]
     Active Substance: PEMBROLIZUMAB
     Indication: Transitional cell carcinoma
     Dosage: UNK UNK, UNKNOWN FREQ.
     Route: 065
     Dates: start: 20211023, end: 20211116

REACTIONS (8)
  - Cardiac failure [Fatal]
  - Febrile neutropenia [Not Recovered/Not Resolved]
  - Renal impairment [Recovering/Resolving]
  - Neutropenia [Not Recovered/Not Resolved]
  - Haemoglobin decreased [Not Recovered/Not Resolved]
  - Leukopenia [Not Recovered/Not Resolved]
  - Abdominal discomfort [Unknown]
  - Alopecia [Unknown]

NARRATIVE: CASE EVENT DATE: 20211201
